FAERS Safety Report 6903737-5 (Version None)
Quarter: 2010Q3

REPORT INFORMATION
  Report Type: 
  Country: None (occurrence: None)
  Receive Date: 20100804
  Receipt Date: 20081231
  Transmission Date: 20110219
  Serious: No
  Sender: FDA-Public Use
  Company Number: US-PFIZER INC-2009150313

PATIENT
  Sex: Female
  Weight: 53.5 kg

DRUGS (3)
  1. LYRICA [Suspect]
     Indication: INTERVERTEBRAL DISC PROTRUSION
     Dosage: 50 MG, 2X/DAY
     Route: 048
     Dates: start: 20081212
  2. LYRICA [Suspect]
     Indication: FIBROMYALGIA
  3. FOSAMAX [Concomitant]
     Dosage: UNK

REACTIONS (1)
  - SOMNOLENCE [None]
